FAERS Safety Report 8565598-0 (Version None)
Quarter: 2012Q3

REPORT INFORMATION
  Report Type: 
  Country: None (occurrence: None)
  Receive Date: 20120803
  Receipt Date: 20120725
  Transmission Date: 20120928
  Serious: Yes (Life-Threatening, Hospitalization, Disabling, Other)
  Sender: FDA-Public Use
  Company Number: GB-TEVA-350287ISR

PATIENT
  Age: 90 Year
  Sex: Female

DRUGS (6)
  1. METOCLOPRAMIDE [Suspect]
     Indication: NAUSEA
     Route: 048
     Dates: start: 20120628, end: 20120710
  2. MORPHINE [Suspect]
     Dosage: PRN (TAKEN AS REQUIRED)
     Route: 048
     Dates: start: 20120628, end: 20120628
  3. CLONAZEPAM [Suspect]
     Indication: ANALGESIC THERAPY
     Dosage: EVERY NIGHT
     Route: 048
     Dates: start: 20120630, end: 20120709
  4. MORPHINE [Suspect]
     Indication: ANALGESIC THERAPY
     Dosage: PRN (TAKEN AS REQUIRED), NOT TAKEN BETWEEN 21/6/12 - 27/6/12
     Route: 048
     Dates: start: 20120619, end: 20120620
  5. ONDANSETRON [Suspect]
     Indication: NAUSEA
     Dosage: PRN (TAKEN AS REQUIRED)
     Route: 048
     Dates: start: 20120628
  6. OXYCODONE HCL [Suspect]
     Indication: ANALGESIC THERAPY
     Dosage: 2.5 - 5MG AS REQUIRED (PRN)
     Route: 048
     Dates: start: 20120628, end: 20120705

REACTIONS (6)
  - RASH [None]
  - STEVENS-JOHNSON SYNDROME [None]
  - BLISTER [None]
  - SKIN EXFOLIATION [None]
  - EXCORIATION [None]
  - ERYTHEMA [None]
